FAERS Safety Report 25656661 (Version 1)
Quarter: 2025Q3

REPORT INFORMATION
  Report Type: Spontaneous
  Country: US (occurrence: US)
  Receive Date: 20250807
  Receipt Date: 20250807
  Transmission Date: 20251021
  Serious: Yes (Death, Hospitalization, Other)
  Sender: NOVO NORDISK
  Company Number: US-NOVOPROD-1492044

PATIENT
  Age: 71 Year
  Sex: Male

DRUGS (1)
  1. OZEMPIC [Suspect]
     Active Substance: SEMAGLUTIDE
     Indication: Product used for unknown indication

REACTIONS (3)
  - Pancreatitis necrotising [Fatal]
  - Exploratory operation [Not Recovered/Not Resolved]
  - Post procedural infection [Not Recovered/Not Resolved]
